FAERS Safety Report 21921639 (Version 1)
Quarter: 2023Q1

REPORT INFORMATION
  Report Type: Spontaneous
  Country: CA (occurrence: CA)
  Receive Date: 20230127
  Receipt Date: 20230127
  Transmission Date: 20230417
  Serious: Yes (Death)
  Sender: FDA-Public Use
  Company Number: CA-PFIZER INC-202300039652

PATIENT
  Age: 97 Year
  Sex: Female

DRUGS (2)
  1. XELJANZ [Suspect]
     Active Substance: TOFACITINIB CITRATE
     Indication: Rheumatoid arthritis
     Dosage: 5 MG, 2X/DAY
     Route: 048
     Dates: start: 20210312
  2. PREDNISONE [Concomitant]
     Active Substance: PREDNISONE
     Dosage: 10 MG, 1X/DAY

REACTIONS (1)
  - Death [Fatal]

NARRATIVE: CASE EVENT DATE: 20230122
